FAERS Safety Report 21957928 (Version 3)
Quarter: 2023Q2

REPORT INFORMATION
  Report Type: Spontaneous
  Country: US (occurrence: US)
  Receive Date: 20230206
  Receipt Date: 20230511
  Transmission Date: 20230722
  Serious: Yes (Other)
  Sender: FDA-Public Use
  Company Number: US-PFIZER INC-202300047692

PATIENT
  Age: 84 Year
  Sex: Female
  Weight: 62.14 kg

DRUGS (1)
  1. TIKOSYN [Suspect]
     Active Substance: DOFETILIDE
     Indication: Cardiac disorder
     Dosage: 250 UG, 2X/DAY (12 HOURS APART)
     Route: 048
     Dates: start: 202206

REACTIONS (1)
  - Tongue cancer recurrent [Unknown]

NARRATIVE: CASE EVENT DATE: 20221101
